FAERS Safety Report 20197031 (Version 2)
Quarter: 2023Q1

REPORT INFORMATION
  Report Type: Report from Study
  Country: US (occurrence: None)
  Receive Date: 20211217
  Receipt Date: 20230308
  Transmission Date: 20230417
  Serious: Yes (Hospitalization, Other)
  Sender: FDA-Public Use
  Company Number: US-ROCHE-2739521

PATIENT
  Age: 53 Year
  Sex: Female
  Weight: 72.3 kg

DRUGS (7)
  1. BEVACIZUMAB [Suspect]
     Active Substance: BEVACIZUMAB
     Indication: Ovarian epithelial cancer
     Route: 065
     Dates: start: 20201102, end: 20201102
  2. PACLITAXEL [Suspect]
     Active Substance: PACLITAXEL
     Indication: Ovarian epithelial cancer
     Route: 065
     Dates: start: 20201102, end: 20201102
  3. CARBOPLATIN [Concomitant]
     Active Substance: CARBOPLATIN
     Dates: start: 201505, end: 201510
  4. DOXORUBICIN [Concomitant]
     Active Substance: DOXORUBICIN
     Dates: start: 201801, end: 201805
  5. OLAPARIB [Concomitant]
     Active Substance: OLAPARIB
     Dates: start: 201806, end: 201902
  6. GEMCITABINE HYDROCHLORIDE [Concomitant]
     Active Substance: GEMCITABINE HYDROCHLORIDE
     Dates: start: 201904, end: 201911
  7. PACLITAXEL [Concomitant]
     Active Substance: PACLITAXEL
     Dates: start: 202005, end: 202006

REACTIONS (3)
  - Vomiting [Not Recovered/Not Resolved]
  - Aspartate aminotransferase increased [Unknown]
  - Abdominal pain [Unknown]

NARRATIVE: CASE EVENT DATE: 20201103
